FAERS Safety Report 11278758 (Version 1)
Quarter: 2015Q3

REPORT INFORMATION
  Report Type: Spontaneous
  Country: GB (occurrence: GB)
  Receive Date: 20150717
  Receipt Date: 20150717
  Transmission Date: 20151125
  Serious: Yes (Hospitalization)
  Sender: FDA-Public Use
  Company Number: PHHY2015GB083469

PATIENT
  Age: 71 Year
  Sex: Male

DRUGS (1)
  1. DEFERASIROX [Suspect]
     Active Substance: DEFERASIROX
     Indication: MYELODYSPLASTIC SYNDROME
     Route: 065

REACTIONS (11)
  - Paraneoplastic pemphigus [Recovered/Resolved]
  - Toxic epidermal necrolysis [Recovered/Resolved]
  - Rash [Recovered/Resolved]
  - Condition aggravated [Recovered/Resolved]
  - Blister [Recovered/Resolved]
  - Rash erythematous [Recovered/Resolved]
  - Chills [Recovered/Resolved]
  - Lip haemorrhage [Recovered/Resolved]
  - Pyrexia [Recovered/Resolved]
  - Epidermal necrosis [Recovered/Resolved]
  - Rash pustular [Recovered/Resolved]
